FAERS Safety Report 22274018 (Version 1)
Quarter: 2023Q2

REPORT INFORMATION
  Report Type: Spontaneous
  Country: US (occurrence: US)
  Receive Date: 20230502
  Receipt Date: 20230502
  Transmission Date: 20230721
  Serious: No
  Sender: FDA-Public Use
  Company Number: US-ELI_LILLY_AND_COMPANY-US202304012141

PATIENT
  Sex: Female

DRUGS (2)
  1. TRULICITY [Suspect]
     Active Substance: DULAGLUTIDE
     Indication: Product used for unknown indication
     Dosage: UNK UNK, UNKNOWN
     Route: 065
  2. ZEJULA [Concomitant]
     Active Substance: NIRAPARIB
     Indication: Ovarian cancer
     Dosage: 200 MG, DAILY
     Route: 048
     Dates: start: 20210201

REACTIONS (4)
  - Insomnia [Unknown]
  - Blood glucose increased [Unknown]
  - Decreased appetite [Unknown]
  - Constipation [Unknown]
